FAERS Safety Report 8235649-1 (Version None)
Quarter: 2012Q1

REPORT INFORMATION
  Report Type: 
  Country: None (occurrence: None)
  Receive Date: 20120326
  Receipt Date: 20120320
  Transmission Date: 20120608
  Serious: Yes (Other)
  Sender: FDA-Public Use
  Company Number: CHPA2012US005198

PATIENT
  Age: 78 Year
  Sex: Female

DRUGS (1)
  1. PREVACID 24 HR [Suspect]
     Indication: GASTROOESOPHAGEAL REFLUX DISEASE
     Dosage: 15 MG, QD
     Route: 048
     Dates: start: 20120318, end: 20120318

REACTIONS (9)
  - CONCOMITANT DISEASE AGGRAVATED [None]
  - HEADACHE [None]
  - PAIN IN JAW [None]
  - EYE PAIN [None]
  - TOOTHACHE [None]
  - HYPERTENSION [None]
  - MALAISE [None]
  - INCORRECT DRUG ADMINISTRATION DURATION [None]
  - OFF LABEL USE [None]
